FAERS Safety Report 21406052 (Version 2)
Quarter: 2022Q4

REPORT INFORMATION
  Report Type: Spontaneous
  Country: US (occurrence: None)
  Receive Date: 20221004
  Receipt Date: 20221111
  Transmission Date: 20230112
  Serious: No
  Sender: FDA-Public Use
  Company Number: 2022A321953

PATIENT
  Age: 31555 Day
  Sex: Male
  Weight: 74.8 kg

DRUGS (7)
  1. CRESTOR [Suspect]
     Active Substance: ROSUVASTATIN CALCIUM
     Indication: Blood cholesterol increased
     Route: 048
     Dates: start: 20220909, end: 20220918
  2. NUPLAZID [Suspect]
     Active Substance: PIMAVANSERIN TARTRATE
     Indication: Parkinson^s disease psychosis
     Route: 048
     Dates: start: 20220712
  3. MAGNESIUM [Concomitant]
     Active Substance: MAGNESIUM
  4. XARELTO [Concomitant]
     Active Substance: RIVAROXABAN
  5. ASPIRIN [Concomitant]
     Active Substance: ASPIRIN
  6. DULCOLAX NOS [Concomitant]
     Active Substance: BISACODYL OR DOCUSATE SODIUM
  7. TORSEMIDE [Concomitant]
     Active Substance: TORSEMIDE

REACTIONS (8)
  - Confusional state [Not Recovered/Not Resolved]
  - Pain [Not Recovered/Not Resolved]
  - Discomfort [Not Recovered/Not Resolved]
  - Gait disturbance [Not Recovered/Not Resolved]
  - Asthenia [Not Recovered/Not Resolved]
  - Myalgia [Unknown]
  - Muscle spasms [Unknown]
  - Hallucination [Unknown]

NARRATIVE: CASE EVENT DATE: 20220911
